FAERS Safety Report 17727646 (Version 3)
Quarter: 2022Q1

REPORT INFORMATION
  Report Type: Report from Study
  Country: CO (occurrence: CO)
  Receive Date: 20200430
  Receipt Date: 20220323
  Transmission Date: 20220423
  Serious: Yes (Hospitalization, Other)
  Sender: FDA-Public Use
  Company Number: CO-ASTELLAS-2017US048165

PATIENT
  Age: 43 Year
  Sex: Female

DRUGS (5)
  1. TACROLIMUS [Suspect]
     Active Substance: TACROLIMUS
     Indication: Liver transplant
     Dosage: 5 MG, ONCE DAILY (5 CAPSULES OF 1MG)
     Route: 048
     Dates: start: 200511
  2. TACROLIMUS [Suspect]
     Active Substance: TACROLIMUS
     Dosage: 5 MG, ONCE DAILY (5 CAPSULES OF 1MG)
     Route: 048
  3. TACROLIMUS [Suspect]
     Active Substance: TACROLIMUS
     Indication: Liver transplant
     Route: 048
  4. PREDNISONE [Suspect]
     Active Substance: PREDNISONE
     Indication: Liver transplant rejection
     Route: 048
     Dates: start: 20191220
  5. OMEPRAZOLE [Concomitant]
     Active Substance: OMEPRAZOLE
     Indication: Product used for unknown indication
     Route: 048

REACTIONS (10)
  - Laboratory test abnormal [Unknown]
  - Nephrolithiasis [Not Recovered/Not Resolved]
  - Liver transplant rejection [Recovered/Resolved]
  - Biliary obstruction [Not Recovered/Not Resolved]
  - Oral discomfort [Recovered/Resolved]
  - Rash [Not Recovered/Not Resolved]
  - Pyrexia [Recovered/Resolved]
  - Anxiety [Recovered/Resolved]
  - Insomnia [Recovered/Resolved]
  - Calculus urethral [Unknown]

NARRATIVE: CASE EVENT DATE: 20171114
